FAERS Safety Report 6921356-1 (Version None)
Quarter: 2010Q3

REPORT INFORMATION
  Report Type: 
  Country: None (occurrence: None)
  Receive Date: 20100812
  Receipt Date: 20100730
  Transmission Date: 20110219
  Serious: Yes (Hospitalization)
  Sender: FDA-Public Use
  Company Number: FR-ELI_LILLY_AND_COMPANY-FR201007007506

PATIENT
  Sex: Male

DRUGS (5)
  1. PROZAC [Suspect]
     Dosage: UNK, DAILY (1/D)
     Route: 065
     Dates: end: 20060801
  2. KETUM [Concomitant]
     Indication: ARTHRALGIA
     Dosage: UNK, UNKNOWN
     Route: 061
     Dates: start: 20060715, end: 20060719
  3. IXPRIM [Concomitant]
     Indication: URETHRITIS
     Dosage: UNK, 2/D
     Route: 048
  4. IBUPROFEN [Concomitant]
     Dosage: UNK, 2/D
     Route: 048
     Dates: end: 20060801
  5. RIVOTRIL [Concomitant]
     Dosage: 5 TIMES DAILY, OTHER
     Route: 048
     Dates: end: 20060801

REACTIONS (5)
  - CHOLESTASIS [None]
  - CYTOLYTIC HEPATITIS [None]
  - DERMATITIS CONTACT [None]
  - DRUG INTERACTION [None]
  - PHOTOSENSITIVITY ALLERGIC REACTION [None]
